FAERS Safety Report 10067631 (Version 1)
Quarter: 2014Q2

REPORT INFORMATION
  Report Type: Report from Study
  Country: US (occurrence: US)
  Receive Date: 20140409
  Receipt Date: 20140409
  Transmission Date: 20141212
  Serious: Yes (Death, Other)
  Sender: FDA-Public Use
  Company Number: US-ASTELLAS-2014US003630

PATIENT
  Age: 72 Year
  Sex: Male

DRUGS (19)
  1. ERLOTINIB TABLET [Suspect]
     Indication: LUNG NEOPLASM MALIGNANT
     Dosage: 75 MG, UID/QD
     Route: 048
     Dates: start: 20131017
  2. ERLOTINIB TABLET [Suspect]
     Dosage: ALTERNATING WITH 75MG EVERY 2 DAYS (50MG, 1 IN 2D)
     Route: 048
     Dates: end: 20140127
  3. ERLOTINIB TABLET [Suspect]
     Dosage: 100 MG, UID/QD
     Route: 048
     Dates: start: 20140128
  4. ERLOTINIB TABLET [Suspect]
     Dosage: 50 MG, UID/QD
     Route: 048
  5. ERLOTINIB TABLET [Suspect]
     Dosage: ALTERNATING 75 MG AND 100 MG EVERY OTHER DAY
     Route: 048
  6. LEXAPRO [Concomitant]
     Indication: PRODUCT USED FOR UNKNOWN INDICATION
     Dosage: UNK
     Route: 065
  7. CARDIZEM                           /00489702/ [Concomitant]
     Indication: PRODUCT USED FOR UNKNOWN INDICATION
     Dosage: UNK
     Route: 065
  8. ATROVENT [Concomitant]
     Indication: PRODUCT USED FOR UNKNOWN INDICATION
     Dosage: UNK
     Route: 065
  9. XOPENEX HFA [Concomitant]
     Indication: PRODUCT USED FOR UNKNOWN INDICATION
     Dosage: UNK
     Route: 065
  10. COMBIVENT [Concomitant]
     Indication: PRODUCT USED FOR UNKNOWN INDICATION
     Dosage: UNK
     Route: 065
  11. ASPIRIN [Concomitant]
     Indication: PRODUCT USED FOR UNKNOWN INDICATION
     Dosage: UNK
     Route: 065
  12. OMEPRAZOLE [Concomitant]
     Indication: PRODUCT USED FOR UNKNOWN INDICATION
     Dosage: UNK
     Route: 065
  13. PROVENTIL HFA                      /00139502/ [Concomitant]
     Indication: PRODUCT USED FOR UNKNOWN INDICATION
     Dosage: UNK
     Route: 065
  14. SYMBICORT [Concomitant]
     Indication: PRODUCT USED FOR UNKNOWN INDICATION
     Dosage: UNK
     Route: 065
  15. INDOMETHACIN                       /00003801/ [Concomitant]
     Indication: PRODUCT USED FOR UNKNOWN INDICATION
     Dosage: UNK
     Route: 065
  16. LISINOPRIL [Concomitant]
     Indication: PRODUCT USED FOR UNKNOWN INDICATION
     Dosage: UNK
     Route: 065
  17. ALBUTEROL                          /00139502/ [Concomitant]
     Indication: PRODUCT USED FOR UNKNOWN INDICATION
     Dosage: UNK
     Route: 065
  18. MORPHINE SULFATE [Concomitant]
     Indication: PRODUCT USED FOR UNKNOWN INDICATION
     Dosage: UNK
     Route: 065
  19. HYDROCODONE [Concomitant]
     Indication: PRODUCT USED FOR UNKNOWN INDICATION
     Dosage: UNK
     Route: 065

REACTIONS (14)
  - Drug ineffective [Unknown]
  - Death [Fatal]
  - Metastases to bone [Unknown]
  - Pain in extremity [Unknown]
  - Pain in extremity [Unknown]
  - Paraesthesia oral [Unknown]
  - Paraesthesia oral [Unknown]
  - Tongue disorder [Unknown]
  - Chapped lips [Unknown]
  - Hip fracture [Unknown]
  - Pruritus [Unknown]
  - Skin exfoliation [Unknown]
  - Dyspnoea [Unknown]
  - Rash [Unknown]
